FAERS Safety Report 8902443 (Version 2)
Quarter: 2012Q4

REPORT INFORMATION
  Report Type: 
  Country: GB (occurrence: GB)
  Receive Date: 20121112
  Receipt Date: 20121128
  Transmission Date: 20130627
  Serious: No
  Sender: FDA-Public Use
  Company Number: GB-JNJFOC-20121102379

PATIENT
  Sex: Female

DRUGS (1)
  1. DUROGESIC DTRANS [Suspect]
     Indication: PAIN MANAGEMENT
     Route: 062

REACTIONS (3)
  - Wrong technique in drug usage process [Unknown]
  - Drug ineffective [Unknown]
  - Product quality issue [Unknown]
